FAERS Safety Report 11496517 (Version 1)
Quarter: 2015Q3

REPORT INFORMATION
  Report Type: Spontaneous
  Country: US (occurrence: US)
  Receive Date: 20150911
  Receipt Date: 20150911
  Transmission Date: 20151125
  Serious: No
  Sender: FDA-Public Use
  Company Number: US-BAYER-2015-414716

PATIENT
  Age: 10 Year
  Sex: Male
  Weight: 37.64 kg

DRUGS (2)
  1. BROMPHENIR./DEXTROMETHOR./GUAIFENESIN/TERPIN/ [Concomitant]
  2. CHILDREN CLARITIN ALLERGY [Suspect]
     Active Substance: LORATADINE
     Dosage: UNK
     Dates: start: 20150830

REACTIONS (1)
  - Product use issue [None]
